FAERS Safety Report 8113717-2 (Version None)
Quarter: 2012Q1

REPORT INFORMATION
  Report Type: 
  Country: None (occurrence: None)
  Receive Date: 20120203
  Receipt Date: 20120125
  Transmission Date: 20120608
  Serious: Yes (Other)
  Sender: FDA-Public Use
  Company Number: CHPA2012CA000506

PATIENT
  Age: 60 Year
  Sex: Male

DRUGS (1)
  1. EXCEDRIN EXTRA STRENGTH TABLETS [Suspect]
     Indication: MIGRAINE
     Dosage: 5-17 TABLETS, IN 24 HRS AS NEEDED
     Route: 048
     Dates: end: 20120101

REACTIONS (5)
  - NAUSEA [None]
  - INCORRECT DOSE ADMINISTERED [None]
  - SPINAL DEFORMITY [None]
  - OVERDOSE [None]
  - BACK INJURY [None]
